FAERS Safety Report 8157613-3 (Version None)
Quarter: 2012Q1

REPORT INFORMATION
  Report Type: 
  Country: None (occurrence: None)
  Receive Date: 20120222
  Receipt Date: 20110426
  Transmission Date: 20120608
  Serious: No
  Sender: FDA-Public Use
  Company Number: US-ASTRAZENECA-2011SE24623

PATIENT
  Age: 72 Year
  Sex: Female

DRUGS (3)
  1. NIASPAN [Suspect]
     Dates: start: 20100101, end: 20100601
  2. TENORMIN [Suspect]
     Route: 048
     Dates: start: 20100101, end: 20100601
  3. ALENDRONATE SODIUM [Suspect]
     Dates: start: 20100101, end: 20100601

REACTIONS (2)
  - DEVICE BREAKAGE [None]
  - RASH [None]
